FAERS Safety Report 7044885-1 (Version None)
Quarter: 2010Q4

REPORT INFORMATION
  Report Type: 
  Country: None (occurrence: None)
  Receive Date: 20101014
  Receipt Date: 20101008
  Transmission Date: 20110411
  Serious: Yes (Life-Threatening)
  Sender: FDA-Public Use
  Company Number: PHHY2010US67779

PATIENT
  Sex: Male

DRUGS (1)
  1. LOTENSIN [Suspect]

REACTIONS (1)
  - FEELING ABNORMAL [None]
